FAERS Safety Report 4594104-0 (Version None)
Quarter: 2005Q1

REPORT INFORMATION
  Report Type: 
  Country: None (occurrence: None)
  Receive Date: 20050218
  Receipt Date: 20050207
  Transmission Date: 20050727
  Serious: Yes (Hospitalization)
  Sender: FDA-Public Use
  Company Number: 02100-JPN-05-0064

PATIENT
  Age: 55 Year
  Sex: Male

DRUGS (2)
  1. CILOSTAZOL [Suspect]
     Indication: CEREBRAL INFARCTION
     Dosage: 200 MG
     Route: 048
     Dates: start: 20050110, end: 20050127
  2. ASPIRIN [Suspect]
     Route: 048

REACTIONS (5)
  - DIABETIC RETINOPATHY [None]
  - DISEASE PROGRESSION [None]
  - HEADACHE [None]
  - RETINAL HAEMORRHAGE [None]
  - TRANSIENT ISCHAEMIC ATTACK [None]
